FAERS Safety Report 13180152 (Version 1)
Quarter: 2017Q1

REPORT INFORMATION
  Report Type: Spontaneous
  Country: SE (occurrence: NO)
  Receive Date: 20170202
  Receipt Date: 20170202
  Transmission Date: 20170428
  Serious: Yes (Death, Other)
  Sender: FDA-Public Use
  Company Number: SE-BAXTER-2017BAX004019

PATIENT
  Sex: Female
  Weight: 65 kg

DRUGS (4)
  1. NATRIUMKLORID BAXTER 9 MG/ML INFUSJONSV?SKE, OPPL?SNING [Suspect]
     Active Substance: SODIUM CHLORIDE
     Indication: DEVICE PRIMING
     Dosage: PRIMING VOLUME 2000
     Route: 010
  2. ANTICOAGULANT CITRATE DEXTROSE A ACD-A [Suspect]
     Active Substance: CITRIC ACID MONOHYDRATE\DEXTROSE MONOHYDRATE\SODIUM CITRATE
     Indication: ANTICOAGULANT THERAPY
     Dosage: SOLUTION
     Route: 010
  3. ANTICOAGULANT CITRATE DEXTROSE A ACD-A [Suspect]
     Active Substance: CITRIC ACID MONOHYDRATE\DEXTROSE MONOHYDRATE\SODIUM CITRATE
     Indication: CONTINUOUS HAEMODIAFILTRATION
     Dosage: SOLUTION
     Route: 010
  4. NATRIUMKLORID BAXTER 9 MG/ML INFUSJONSV?SKE, OPPL?SNING [Suspect]
     Active Substance: SODIUM CHLORIDE
     Indication: CONTINUOUS HAEMODIAFILTRATION
     Dosage: PRIMING VOLUME 2000
     Route: 010

REACTIONS (2)
  - Cardiac arrest [Recovered/Resolved]
  - Multiple organ dysfunction syndrome [Fatal]

NARRATIVE: CASE EVENT DATE: 20160202
